FAERS Safety Report 5828701-9 (Version None)
Quarter: 2008Q3

REPORT INFORMATION
  Report Type: 
  Country: None (occurrence: None)
  Receive Date: 20080731
  Receipt Date: 20080723
  Transmission Date: 20090109
  Serious: Yes (Hospitalization, Other)
  Sender: FDA-Public Use
  Company Number: NL-ASTRAZENECA-2008AC01830

PATIENT
  Age: 41 Year
  Sex: Female

DRUGS (2)
  1. ZOLADEX [Suspect]
     Indication: METRORRHAGIA
     Route: 058
  2. LEVOTHYROXINE SODIUM [Interacting]
     Indication: HYPOTHYROIDISM

REACTIONS (2)
  - DRUG INTERACTION [None]
  - HYPERTHYROIDISM [None]
